FAERS Safety Report 8861270 (Version 1)
Quarter: 2012Q4

REPORT INFORMATION
  Report Type: Spontaneous
  Country: US (occurrence: None)
  Receive Date: 20121025
  Receipt Date: 20121025
  Transmission Date: 20130627
  Serious: Yes (Other)
  Sender: FDA-Public Use
  Company Number: None

PATIENT
  Age: 8 Year
  Sex: Male
  Weight: 28.12 kg

DRUGS (2)
  1. MONTELUKAST [Suspect]
     Indication: PERENNIAL ALLERGIC RHINITIS
     Dosage: 5MG at bedtime
     Dates: start: 20110627, end: 20110701
  2. MONTELUKAST [Suspect]
     Indication: PERENNIAL ALLERGIC RHINITIS
     Dates: start: 20120417

REACTIONS (5)
  - Nasal congestion [None]
  - Rhinorrhoea [None]
  - Lacrimation increased [None]
  - Eye pruritus [None]
  - Product substitution issue [None]
